FAERS Safety Report 6910500-8 (Version None)
Quarter: 2010Q3

REPORT INFORMATION
  Report Type: 
  Country: None (occurrence: None)
  Receive Date: 20100806
  Receipt Date: 20100726
  Transmission Date: 20110219
  Serious: Yes (Hospitalization)
  Sender: FDA-Public Use
  Company Number: PHHY2010US25768

PATIENT
  Sex: Male

DRUGS (11)
  1. EXJADE [Suspect]
     Indication: IRON OVERLOAD
     Dosage: 2000 MG DAILY
     Route: 048
     Dates: start: 20091221
  2. EXJADE [Suspect]
     Dosage: 2500 MG, UNK
  3. VITAMIN D [Concomitant]
  4. METOPROLOL [Concomitant]
  5. ALENDRONATE SODIUM [Concomitant]
  6. WARFARIN [Concomitant]
  7. CALCIUM [Concomitant]
  8. OMEPRAZOLE [Concomitant]
  9. PREDNISONE [Concomitant]
  10. VITAMIN B [Concomitant]
  11. DIGOXIN [Concomitant]

REACTIONS (2)
  - HAEMOPTYSIS [None]
  - PNEUMONIA [None]
